FAERS Safety Report 23979965 (Version 2)
Quarter: 2024Q2

REPORT INFORMATION
  Report Type: Spontaneous
  Country: US (occurrence: US)
  Receive Date: 20240617
  Receipt Date: 20240624
  Transmission Date: 20240716
  Serious: Yes (Hospitalization, Disabling, Other)
  Sender: FDA-Public Use
  Company Number: US-TAKEDA-2024TUS059013

PATIENT
  Age: 58 Year
  Sex: Male
  Weight: 75 kg

DRUGS (5)
  1. GAMMAGARD LIQUID [Suspect]
     Active Substance: HUMAN IMMUNOGLOBULIN G
     Indication: Myasthenia gravis
     Dosage: UNK
     Route: 065
     Dates: start: 202312
  2. GAMMAGARD LIQUID [Suspect]
     Active Substance: HUMAN IMMUNOGLOBULIN G
     Dosage: UNK
     Route: 042
     Dates: start: 20240416, end: 20240419
  3. MESTINON [Concomitant]
     Active Substance: PYRIDOSTIGMINE BROMIDE
     Dosage: UNK
     Route: 065
  4. ELIQUIS [Concomitant]
     Active Substance: APIXABAN
     Dosage: UNK
     Route: 065
  5. PYRIDOSTIGMINE [Concomitant]
     Active Substance: PYRIDOSTIGMINE
     Indication: Muscular weakness
     Dosage: 60 MILLIGRAM
     Route: 048
     Dates: start: 2021

REACTIONS (15)
  - Pulmonary embolism [Recovered/Resolved]
  - Pulmonary thrombosis [Unknown]
  - Metastases to lung [Unknown]
  - Disability [Unknown]
  - Procedural pain [Unknown]
  - Post procedural infection [Unknown]
  - Impaired work ability [Unknown]
  - Limb discomfort [Unknown]
  - Coagulopathy [Unknown]
  - Diplopia [Not Recovered/Not Resolved]
  - Muscular weakness [Unknown]
  - Vomiting [Unknown]
  - Migraine [Unknown]
  - Incorrect drug administration rate [Unknown]
  - Inappropriate schedule of product administration [Unknown]

NARRATIVE: CASE EVENT DATE: 20240420
